FAERS Safety Report 8190540-4 (Version None)
Quarter: 2012Q1

REPORT INFORMATION
  Report Type: 
  Country: None (occurrence: None)
  Receive Date: 20120221
  Receipt Date: 20111213
  Transmission Date: 20120608
  Serious: No
  Sender: FDA-Public Use
  Company Number: 1000026241

PATIENT
  Age: 74 Year
  Sex: Female

DRUGS (3)
  1. VIIBRYD [Suspect]
     Indication: DEPRESSION
     Dosage: 5 MG (5 MG, 1 IN 1 D), ORAL
     Route: 048
     Dates: start: 20111208, end: 20111215
  2. REDNISONE (PREDNISONE) (PREDNISONE) [Concomitant]
  3. ATENOLOL [Concomitant]

REACTIONS (7)
  - DIZZINESS [None]
  - DIARRHOEA [None]
  - STOMATITIS [None]
  - PRURITUS [None]
  - HEADACHE [None]
  - BURNING SENSATION [None]
  - INSOMNIA [None]
